APPROVED DRUG PRODUCT: MAGNESIUM SULFATE IN PLASTIC CONTAINER
Active Ingredient: MAGNESIUM SULFATE
Strength: 20GM/500ML (40MG/ML)
Dosage Form/Route: INJECTABLE;INJECTION
Application: A207350 | Product #004 | TE Code: AP
Applicant: HQ SPECIALTY PHARMA CORP
Approved: Dec 6, 2017 | RLD: No | RS: No | Type: RX